FAERS Safety Report 13400516 (Version 2)
Quarter: 2017Q2

REPORT INFORMATION
  Report Type: Spontaneous
  Country: US (occurrence: US)
  Receive Date: 20170404
  Receipt Date: 20170417
  Transmission Date: 20170830
  Serious: No
  Sender: FDA-Public Use
  Company Number: US-AMGEN-US145008

PATIENT

DRUGS (2)
  1. ENBREL [Suspect]
     Active Substance: ETANERCEPT
     Indication: DERMATITIS ATOPIC
     Dosage: 12.5 MG, 2 TIMES/WK
     Route: 065
  2. CYCLOSPORINE. [Concomitant]
     Active Substance: CYCLOSPORINE
     Dosage: UNK

REACTIONS (3)
  - Urticaria [Unknown]
  - Viral infection [Unknown]
  - Off label use [Unknown]
